FAERS Safety Report 5109401-X (Version None)
Quarter: 2006Q3

REPORT INFORMATION
  Report Type: 
  Country: None (occurrence: None)
  Receive Date: 20060731
  Receipt Date: 20060404
  Transmission Date: 20061208
  Serious: No
  Sender: FDA-Public Use
  Company Number: 2006PV011503

PATIENT
  Age: 79 Year
  Sex: Male

DRUGS (7)
  1. BYETTA [Suspect]
     Indication: DIABETES MELLITUS NON-INSULIN-DEPENDENT
     Dosage: 5 MCG;BID;SC
     Route: 058
     Dates: start: 20060403
  2. NPH INSULIN [Concomitant]
  3. TOPROL-XL [Concomitant]
  4. QUINAPRIL [Concomitant]
  5. AVALIDE 300 [Concomitant]
  6. LIPITOR [Concomitant]
  7. CELEBREX [Concomitant]

REACTIONS (2)
  - BLOOD GLUCOSE INCREASED [None]
  - NAUSEA [None]
